FAERS Safety Report 7369427-2 (Version None)
Quarter: 2011Q1

REPORT INFORMATION
  Report Type: 
  Country: None (occurrence: None)
  Receive Date: 20110323
  Receipt Date: 20110311
  Transmission Date: 20110831
  Serious: Yes (Other)
  Sender: FDA-Public Use
  Company Number: US-ROCHE-762776

PATIENT
  Sex: Male
  Weight: 95.7 kg

DRUGS (1)
  1. AVASTIN [Suspect]
     Indication: OVARIAN CANCER
     Dosage: FREQUENCY Q3 WEEKS FOR 15 MONTHS
     Route: 042
     Dates: start: 20110127

REACTIONS (1)
  - EYELID PTOSIS [None]
